FAERS Safety Report 13603612 (Version 3)
Quarter: 2018Q1

REPORT INFORMATION
  Report Type: Spontaneous
  Country: US (occurrence: US)
  Receive Date: 20170601
  Receipt Date: 20180131
  Transmission Date: 20180508
  Serious: Yes (Hospitalization, Other)
  Sender: FDA-Public Use
  Company Number: US-MYLANLABS-2017M1032264

PATIENT
  Age: 55 Year
  Sex: Male

DRUGS (4)
  1. CLONAZEPAM. [Interacting]
     Active Substance: CLONAZEPAM
     Indication: PRODUCT USED FOR UNKNOWN INDICATION
     Dosage: UNK
  2. CITALOPRAM [Interacting]
     Active Substance: CITALOPRAM HYDROBROMIDE
     Indication: PRODUCT USED FOR UNKNOWN INDICATION
     Dosage: UNK
  3. CLOZAPINE. [Suspect]
     Active Substance: CLOZAPINE
     Indication: PRODUCT USED FOR UNKNOWN INDICATION
     Dosage: 650 MG, QD
  4. CLOZAPINE. [Interacting]
     Active Substance: CLOZAPINE
     Dosage: 450 MG, UNK

REACTIONS (6)
  - Respiratory failure [Unknown]
  - Labelled drug-drug interaction medication error [Unknown]
  - Delirium [Unknown]
  - Sedation [Unknown]
  - Intestinal dilatation [Unknown]
  - Constipation [Unknown]
